FAERS Safety Report 9909280 (Version 1)
Quarter: 2014Q1

REPORT INFORMATION
  Report Type: Spontaneous
  Country: DE (occurrence: DE)
  Receive Date: 20140219
  Receipt Date: 20140219
  Transmission Date: 20141002
  Serious: Yes (Other)
  Sender: FDA-Public Use
  Company Number: DE-TEVA-461994GER

PATIENT
  Sex: Male
  Weight: 119 kg

DRUGS (1)
  1. ATORVASTATIN [Suspect]
     Indication: CORONARY ARTERY DISEASE
     Route: 048
     Dates: start: 20131215, end: 20140130

REACTIONS (2)
  - Abasia [Unknown]
  - Sensation of heaviness [Unknown]
